FAERS Safety Report 8930194 (Version 1)
Quarter: 2012Q4

REPORT INFORMATION
  Report Type: 
  Country: US (occurrence: US)
  Receive Date: 20121128
  Receipt Date: 20121128
  Transmission Date: 20130627
  Serious: Yes (Death, Life-Threatening, Hospitalization, Congenital Anomaly, Other)
  Sender: FDA-Public Use
  Company Number: US-ELI_LILLY_AND_COMPANY-US201211005370

PATIENT
  Age: 2 None

DRUGS (1)
  1. PROZAC [Suspect]
     Dosage: 1 DF, unknown
     Route: 064

REACTIONS (20)
  - Death [Fatal]
  - Neonatal respiratory distress syndrome [Unknown]
  - Haemorrhagic stroke [Not Recovered/Not Resolved]
  - Brain injury [Not Recovered/Not Resolved]
  - Renal aplasia [Unknown]
  - Pulmonary hypoplasia [Unknown]
  - Renal osteodystrophy [Unknown]
  - Brain injury [Unknown]
  - Skull malformation [Unknown]
  - Angiopathy [Unknown]
  - Bladder agenesis [Unknown]
  - Oligohydramnios [Unknown]
  - Hip dysplasia [Unknown]
  - Developmental delay [Unknown]
  - Feeding disorder neonatal [Unknown]
  - Learning disability [Unknown]
  - Visual impairment [Unknown]
  - Hearing impaired [Unknown]
  - Joint range of motion decreased [Unknown]
  - Foetal exposure during pregnancy [Recovered/Resolved]
